FAERS Safety Report 7024921-9 (Version None)
Quarter: 2010Q4

REPORT INFORMATION
  Report Type: 
  Country: None (occurrence: None)
  Receive Date: 20101001
  Receipt Date: 20100921
  Transmission Date: 20110411
  Serious: Yes (Hospitalization)
  Sender: FDA-Public Use
  Company Number: US-PFIZER INC-2010120249

PATIENT
  Age: 83 Year
  Sex: Female

DRUGS (4)
  1. SULFASALAZINE [Suspect]
     Dosage: UNK
  2. TERIPARATIDE [Suspect]
     Indication: OSTEOPOROSIS
     Dosage: 20 UG, 1X/DAY
     Dates: start: 20100817
  3. NEBIVOLOL [Concomitant]
     Dosage: UNK
  4. CALCIUM CARBONATE [Concomitant]
     Dosage: UNK

REACTIONS (1)
  - DIVERTICULITIS [None]
